FAERS Safety Report 7995668-7 (Version None)
Quarter: 2011Q4

REPORT INFORMATION
  Report Type: 
  Country: None (occurrence: None)
  Receive Date: 20111220
  Receipt Date: 20111209
  Transmission Date: 20120403
  Serious: Yes (Other)
  Sender: FDA-Public Use
  Company Number: US-BAYER-2011-119228

PATIENT
  Age: 89 Year
  Sex: Female

DRUGS (2)
  1. ASPIRIN [Suspect]
     Dosage: 500 MG, ONCE
     Route: 048
  2. EYE DROPS [Concomitant]

REACTIONS (2)
  - THROAT IRRITATION [None]
  - CHOKING [None]
